FAERS Safety Report 5169484-8 (Version None)
Quarter: 2006Q4

REPORT INFORMATION
  Report Type: 
  Country: None (occurrence: None)
  Receive Date: 20061204
  Receipt Date: 20061120
  Transmission Date: 20070319
  Serious: Yes (Death)
  Sender: FDA-Public Use
  Company Number: 2006CT000994

PATIENT
  Age: 77 Year
  Sex: Female
  Weight: 68.0396 kg

DRUGS (15)
  1. VENTAVIS [Suspect]
     Indication: PULMONARY HYPERTENSION
     Dosage: 5 UG; 6TO 9X/DAY; INH
     Route: 055
     Dates: start: 20050406, end: 20061116
  2. HYZAAR [Concomitant]
  3. AMLODIPINE [Concomitant]
  4. MULTIPLE VITAMIN [Concomitant]
  5. COLACE [Concomitant]
  6. FOLIC ACID [Concomitant]
  7. TRACLEER [Concomitant]
  8. GLUCOSAMINE [Concomitant]
  9. PERCOCET [Concomitant]
  10. ESZOPICLONE [Concomitant]
  11. ARICEPT [Concomitant]
  12. ZETIA [Concomitant]
  13. TRAZODONE HCL [Concomitant]
  14. PAROXETINE HYDROCHLORIDE [Concomitant]
  15. ASPIRIN [Concomitant]

REACTIONS (1)
  - SUDDEN DEATH [None]
